FAERS Safety Report 24647350 (Version 2)
Quarter: 2024Q4

REPORT INFORMATION
  Report Type: Spontaneous
  Country: US (occurrence: US)
  Receive Date: 20241121
  Receipt Date: 20241125
  Transmission Date: 20250115
  Serious: No
  Sender: PFIZER
  Company Number: US-PFIZER INC-202400305585

PATIENT
  Age: 22 Year
  Sex: Female
  Weight: 74.84 kg

DRUGS (2)
  1. DEPO-PROVERA [Suspect]
     Active Substance: MEDROXYPROGESTERONE ACETATE
     Indication: Pregnancy on contraceptive
     Dosage: UNK
     Dates: start: 2019, end: 20240913
  2. CETIRIZINE HCL [Concomitant]
     Active Substance: CETIRIZINE HYDROCHLORIDE
     Indication: Seasonal allergy
     Dosage: 10 MG

REACTIONS (3)
  - Headache [Not Recovered/Not Resolved]
  - Nausea [Unknown]
  - Migraine [Unknown]
